FAERS Safety Report 6899548-X (Version None)
Quarter: 2010Q3

REPORT INFORMATION
  Report Type: 
  Country: None (occurrence: None)
  Receive Date: 20100803
  Receipt Date: 20100728
  Transmission Date: 20110219
  Serious: No
  Sender: FDA-Public Use
  Company Number: US-BIOGENIDEC-2010BI025943

PATIENT
  Sex: Female

DRUGS (1)
  1. TYSABRI [Suspect]
     Indication: MULTIPLE SCLEROSIS
     Route: 042
     Dates: start: 20071018

REACTIONS (11)
  - AMNESIA [None]
  - ATTENTION DEFICIT/HYPERACTIVITY DISORDER [None]
  - COLONIC POLYP [None]
  - DEHYDRATION [None]
  - DIZZINESS [None]
  - HEADACHE [None]
  - INSOMNIA [None]
  - SNORING [None]
  - UPPER RESPIRATORY TRACT INFECTION [None]
  - URINARY TRACT INFECTION [None]
  - WEIGHT LOSS POOR [None]
